FAERS Safety Report 4802290-X (Version None)
Quarter: 2005Q4

REPORT INFORMATION
  Report Type: 
  Country: None (occurrence: None)
  Receive Date: 20051012
  Receipt Date: 20050927
  Transmission Date: 20060501
  Serious: Yes (Other)
  Sender: FDA-Public Use
  Company Number: 217699

PATIENT
  Age: 43 Year
  Sex: Female

DRUGS (5)
  1. AVASTIN [Suspect]
     Indication: BREAST CANCER METASTATIC
     Dosage: 10 MG/KG, Q2W, INTRAVENOUS
     Route: 042
     Dates: start: 20050218
  2. CYTOXAN [Concomitant]
  3. METHOTREXATE [Concomitant]
  4. COMPAZINE [Concomitant]
  5. ZOMETA [Concomitant]

REACTIONS (1)
  - ANAEMIA [None]
